FAERS Safety Report 6333935-3 (Version None)
Quarter: 2009Q3

REPORT INFORMATION
  Report Type: 
  Country: None (occurrence: None)
  Receive Date: 20090829
  Receipt Date: 20090619
  Transmission Date: 20100115
  Serious: No
  Sender: FDA-Public Use
  Company Number: US-ABBOTT-09P-163-0580952-00

PATIENT
  Sex: Male

DRUGS (3)
  1. SIMCOR [Suspect]
     Indication: HIGH DENSITY LIPOPROTEIN DECREASED
     Dosage: 500/20 MG EVERY NIGHT
     Dates: start: 20090426
  2. SIMCOR [Suspect]
     Indication: LOW DENSITY LIPOPROTEIN INCREASED
  3. NORCO [Concomitant]
     Indication: DRUG USE FOR UNKNOWN INDICATION
     Route: 048

REACTIONS (2)
  - FLUSHING [None]
  - INCORRECT DRUG ADMINISTRATION DURATION [None]
